FAERS Safety Report 5862104-6 (Version None)
Quarter: 2008Q3

REPORT INFORMATION
  Report Type: 
  Country: None (occurrence: None)
  Receive Date: 20080827
  Receipt Date: 20080827
  Transmission Date: 20090109
  Serious: No
  Sender: FDA-Public Use
  Company Number: None

PATIENT
  Age: 79 Year
  Sex: Female

DRUGS (14)
  1. CLINDAMYCIN HCL [Suspect]
     Dates: start: 20070219, end: 20070221
  2. LOVASTATIN [Suspect]
     Dates: start: 20061023, end: 20070323
  3. DICLOFENAC [Suspect]
     Dates: start: 20070219, end: 20070221
  4. FOSAMAX [Concomitant]
  5. AMBIEN [Concomitant]
  6. SYNTHROID [Concomitant]
  7. DETROL [Concomitant]
  8. M.V.I. [Concomitant]
  9. VITAMIN K TAB [Concomitant]
  10. BILBERRY [Concomitant]
  11. LUTEIN [Concomitant]
  12. VALARIAN ROOT [Concomitant]
  13. BENEFIBER [Concomitant]
  14. VITAMIN D [Concomitant]

REACTIONS (5)
  - LIVER INJURY [None]
  - MENTAL STATUS CHANGES [None]
  - OEDEMA [None]
  - PRURITUS [None]
  - RASH MACULAR [None]
